FAERS Safety Report 23049567 (Version 1)
Quarter: 2023Q4

REPORT INFORMATION
  Report Type: Other
  Country: None (occurrence: MY)
  Receive Date: 20231010
  Receipt Date: 20231010
  Transmission Date: 20240110
  Serious: Yes (Hospitalization, Other)
  Sender: FDA-Public Use
  Company Number: MY-Zhejiang Jingxin Pharmaceutical Co., Ltd-2146854

PATIENT
  Age: 50 Year
  Sex: Female
  Weight: 38 kg

DRUGS (5)
  1. LEVETIRACETAM [Suspect]
     Active Substance: LEVETIRACETAM
     Indication: Seizure
     Route: 065
  2. DEXMEDETOMIDINE [Interacting]
     Active Substance: DEXMEDETOMIDINE
     Route: 065
  3. DEXAMETHASONE [Concomitant]
     Active Substance: DEXAMETHASONE
     Route: 065
  4. REMIFENTANIL [Concomitant]
     Active Substance: REMIFENTANIL
     Route: 065
  5. BUPIVACAINE HYDROCHLORIDE AND EPINEPHRINE [Concomitant]
     Active Substance: BUPIVACAINE HYDROCHLORIDE\EPINEPHRINE BITARTRATE
     Route: 065

REACTIONS (2)
  - Apnoea [Recovered/Resolved]
  - Drug interaction [Unknown]
